FAERS Safety Report 11270159 (Version 3)
Quarter: 2016Q1

REPORT INFORMATION
  Report Type: Report from Study
  Country: JP (occurrence: JP)
  Receive Date: 20150714
  Receipt Date: 20160111
  Transmission Date: 20160525
  Serious: Yes (Other)
  Sender: FDA-Public Use
  Company Number: JP-JNJFOC-20150412466

PATIENT
  Age: 67 Year
  Sex: Male
  Weight: 69 kg

DRUGS (8)
  1. LOXONIN [Concomitant]
     Active Substance: LOXOPROFEN SODIUM
     Indication: BACK PAIN
     Route: 061
     Dates: start: 20150603, end: 20150624
  2. SOVRIAD [Suspect]
     Active Substance: SIMEPREVIR
     Indication: CHRONIC HEPATITIS C
     Route: 048
     Dates: start: 20150204, end: 20150427
  3. RIBAVIRIN. [Suspect]
     Active Substance: RIBAVIRIN
     Indication: CHRONIC HEPATITIS C
     Route: 048
     Dates: start: 20150204, end: 20150721
  4. PEGINTERFERON ALFA-2B [Suspect]
     Active Substance: PEGINTERFERON ALFA-2B
     Indication: CHRONIC HEPATITIS C
     Route: 058
     Dates: start: 20150204, end: 20150715
  5. GASTER [Concomitant]
     Active Substance: FAMOTIDINE
     Indication: CHRONIC GASTRITIS
     Route: 048
  6. MYSLEE [Concomitant]
     Active Substance: ZOLPIDEM TARTRATE
     Indication: INSOMNIA
     Route: 048
     Dates: end: 20150828
  7. MAGNESIUM OXIDE. [Concomitant]
     Active Substance: MAGNESIUM OXIDE
     Indication: CONSTIPATION
     Route: 048
     Dates: end: 20150828
  8. GOSHAJINKIGAN [Concomitant]
     Active Substance: HERBALS
     Indication: POLLAKIURIA
     Route: 048
     Dates: start: 20150610, end: 20150721

REACTIONS (4)
  - Weight decreased [Unknown]
  - Blood bilirubin increased [Recovered/Resolved]
  - Pruritus [Recovered/Resolved]
  - Platelet count decreased [Recovered/Resolved]

NARRATIVE: CASE EVENT DATE: 20150210
